FAERS Safety Report 4469384-2 (Version None)
Quarter: 2004Q4

REPORT INFORMATION
  Report Type: 
  Country: None (occurrence: None)
  Receive Date: 20041008
  Receipt Date: 20040430
  Transmission Date: 20050328
  Serious: No
  Sender: FDA-Public Use
  Company Number: US-BRISTOL-MYERS SQUIBB COMPANY-12575999

PATIENT
  Age: 80 Year
  Sex: Male
  Weight: 90 kg

DRUGS (5)
  1. AVAPRO [Suspect]
     Indication: CARDIAC FAILURE
     Route: 048
  2. COREG [Concomitant]
  3. PROSCAR [Concomitant]
  4. PRANDIN [Concomitant]
  5. WELCHOL [Concomitant]

REACTIONS (2)
  - DYSURIA [None]
  - RETINAL OEDEMA [None]
